FAERS Safety Report 9421157 (Version 2)
Quarter: 2013Q3

REPORT INFORMATION
  Report Type: Spontaneous
  Country: JP (occurrence: JP)
  Receive Date: 20130725
  Receipt Date: 20130731
  Transmission Date: 20140515
  Serious: Yes (Other)
  Sender: FDA-Public Use
  Company Number: JP-009507513-1306JPN004820

PATIENT
  Age: 25 Year
  Sex: Female
  Weight: 54 kg

DRUGS (1)
  1. MARVELON 28 [Suspect]
     Indication: CONTRACEPTION
     Dosage: ACTIVE DRUG 1T / DAY TAKEN TILL 02-JUN-2013; 03-JUN-2013 FORGOT THE 1ST DOSE OF PLACEBO, AND TOOK 2T
     Route: 048
     Dates: start: 20130513, end: 20130604

REACTIONS (2)
  - Toxic skin eruption [Recovering/Resolving]
  - Inappropriate schedule of drug administration [Unknown]
